FAERS Safety Report 13948826 (Version 2)
Quarter: 2017Q4

REPORT INFORMATION
  Report Type: Spontaneous
  Country: US (occurrence: US)
  Receive Date: 20170908
  Receipt Date: 20171120
  Transmission Date: 20180320
  Serious: Yes (Disabling, Other)
  Sender: FDA-Public Use
  Company Number: US-REGENERON PHARMACEUTICALS, INC.-2017-21403

PATIENT

DRUGS (2)
  1. EYLEA [Suspect]
     Active Substance: AFLIBERCEPT
     Indication: NEOVASCULAR AGE-RELATED MACULAR DEGENERATION
     Dosage: 2 UNITS, OS
     Dates: start: 20150123
  2. EYLEA [Suspect]
     Active Substance: AFLIBERCEPT
     Dosage: 2 UNITS, OS, SINGLE, LAST DOSE ADMINISTERED
     Dates: start: 20170828, end: 20170828

REACTIONS (6)
  - Visual impairment [Recovered/Resolved]
  - Blindness transient [Recovered/Resolved]
  - Eye inflammation [Recovered/Resolved]
  - Photophobia [Recovered/Resolved]
  - Vision blurred [Recovered/Resolved]
  - Eye pain [Recovered/Resolved]

NARRATIVE: CASE EVENT DATE: 20170829
